FAERS Safety Report 25317901 (Version 1)
Quarter: 2025Q2

REPORT INFORMATION
  Report Type: Report from Study
  Country: US (occurrence: US)
  Receive Date: 20250515
  Receipt Date: 20250515
  Transmission Date: 20250717
  Serious: Yes (Hospitalization)
  Sender: AMGEN
  Company Number: US-AMGEN-USASL2025091614

PATIENT
  Age: 78 Year
  Sex: Male

DRUGS (2)
  1. KRYSTEXXA [Suspect]
     Active Substance: PEGLOTICASE
     Indication: Gouty tophus
     Route: 040
     Dates: start: 20250409
  2. KRYSTEXXA [Suspect]
     Active Substance: PEGLOTICASE
     Route: 040
     Dates: start: 2025

REACTIONS (1)
  - Dyspnoea [Unknown]

NARRATIVE: CASE EVENT DATE: 20250101
